FAERS Safety Report 13136029 (Version 1)
Quarter: 2017Q1

REPORT INFORMATION
  Report Type: Spontaneous
  Country: GB (occurrence: GB)
  Receive Date: 20170120
  Receipt Date: 20170120
  Transmission Date: 20170428
  Serious: Yes (Hospitalization)
  Sender: FDA-Public Use
  Company Number: GB-ABBVIE-17P-167-1848246-00

PATIENT
  Sex: Male

DRUGS (2)
  1. TEVETEN [Suspect]
     Active Substance: EPROSARTAN MESYLATE
     Route: 048
  2. TEVETEN [Suspect]
     Active Substance: EPROSARTAN MESYLATE
     Indication: HYPERTENSION
     Route: 048

REACTIONS (1)
  - Medication error [Unknown]
